FAERS Safety Report 4339325-7 (Version None)
Quarter: 2004Q2

REPORT INFORMATION
  Report Type: 
  Country: None (occurrence: None)
  Receive Date: 20040415
  Receipt Date: 20040406
  Transmission Date: 20050107
  Serious: Yes (Hospitalization)
  Sender: FDA-Public Use
  Company Number: 200412759US

PATIENT
  Age: 65 Year
  Sex: Male
  Weight: 100 kg

DRUGS (2)
  1. LOVENOX [Suspect]
     Indication: HIP ARTHROPLASTY
     Route: 058
  2. LOVENOX [Suspect]
     Indication: PROPHYLAXIS
     Route: 058

REACTIONS (1)
  - ARTHROPATHY [None]
